FAERS Safety Report 4999373-0 (Version None)
Quarter: 2006Q2

REPORT INFORMATION
  Report Type: 
  Country: None (occurrence: None)
  Receive Date: 20060510
  Receipt Date: 20060510
  Transmission Date: 20061013
  Serious: Yes (Hospitalization)
  Sender: FDA-Public Use
  Company Number: None

PATIENT
  Age: 71 Year
  Sex: Male

DRUGS (17)
  1. TOBRAMYCIN [Suspect]
     Indication: PNEUMONIA
     Dosage: 250 MG PULSE DOSES
     Dates: start: 20060314, end: 20060328
  2. GASTROGRAFIN [Suspect]
     Indication: COMPUTERISED TOMOGRAM
     Dosage: ONCE
     Dates: start: 20060317, end: 20060317
  3. ACETAMINOPHEN [Concomitant]
  4. ACETYLCYSTEINE SOLN, INHL/ORAL [Concomitant]
  5. ALBUTEROL [Concomitant]
  6. AMIODARONE [Concomitant]
  7. CEFEPIME [Concomitant]
  8. DILTIAZEM -PLAIN- [Concomitant]
  9. ESMOLOL HCL [Concomitant]
  10. HEPARIN [Concomitant]
  11. HUMULIN R [Concomitant]
  12. IPRATROPIUM BR [Concomitant]
  13. LABETALOL HCL [Concomitant]
  14. MULTI-VITAMIN [Concomitant]
  15. NOREPINEPHRINE [Concomitant]
  16. DEXTROSE [Concomitant]
  17. PAROXETINE [Concomitant]

REACTIONS (2)
  - BLOOD CREATININE INCREASED [None]
  - BLOOD PRESSURE ABNORMAL [None]
